FAERS Safety Report 5195735-X (Version None)
Quarter: 2006Q4

REPORT INFORMATION
  Report Type: 
  Country: None (occurrence: None)
  Receive Date: 20061222
  Receipt Date: 20061222
  Transmission Date: 20070319
  Serious: No
  Sender: FDA-Public Use
  Company Number: None

PATIENT
  Age: 37 Year
  Sex: Female

DRUGS (7)
  1. ACCUPRIL [Suspect]
     Dates: start: 20050401, end: 20051101
  2. LANTUS [Concomitant]
  3. NOVOLOG [Concomitant]
  4. GLUCOPHAGE [Concomitant]
  5. LIPITOR [Concomitant]
  6. ACTOS [Concomitant]
  7. NEXIUM [Concomitant]

REACTIONS (21)
  - BILE DUCT STONE [None]
  - BILIARY TRACT DISORDER [None]
  - BLOOD GLUCOSE INCREASED [None]
  - CONDITION AGGRAVATED [None]
  - DRUG INEFFECTIVE [None]
  - DYSPHAGIA [None]
  - EJECTION FRACTION DECREASED [None]
  - ELECTROPHORESIS PROTEIN ABNORMAL [None]
  - FEELING ABNORMAL [None]
  - HEADACHE [None]
  - HEPATIC INFILTRATION EOSINOPHILIC [None]
  - HEPATIC TRAUMA [None]
  - HEPATITIS B [None]
  - HEPATOMEGALY [None]
  - HEPATOTOXICITY [None]
  - MALAISE [None]
  - OEDEMA [None]
  - OESOPHAGITIS [None]
  - REFUSAL OF TREATMENT BY PATIENT [None]
  - TREATMENT NONCOMPLIANCE [None]
  - WHITE BLOOD CELL COUNT INCREASED [None]
